FAERS Safety Report 15373278 (Version 1)
Quarter: 2018Q3

REPORT INFORMATION
  Report Type: Spontaneous
  Country: AU (occurrence: AU)
  Receive Date: 20180912
  Receipt Date: 20180912
  Transmission Date: 20181010
  Serious: Yes (Life-Threatening)
  Sender: FDA-Public Use
  Company Number: AU-AMGEN-AUSSP2018126294

PATIENT
  Sex: Female

DRUGS (15)
  1. PREGABALIN. [Suspect]
     Active Substance: PREGABALIN
     Indication: MIGRAINE
     Dosage: UNK
     Route: 065
  2. GABAPENTIN. [Suspect]
     Active Substance: GABAPENTIN
     Indication: MIGRAINE
     Dosage: 600 MG, MANE, MIDI, AFTERNOON AND NOCTE
     Route: 065
  3. TOPAMAX [Suspect]
     Active Substance: TOPIRAMATE
     Indication: MIGRAINE
     Dosage: 100 MG, BID
     Route: 065
  4. PANADOL [Suspect]
     Active Substance: ACETAMINOPHEN
     Indication: MIGRAINE
     Dosage: UNK TDS
     Route: 065
  5. VERAPAMIL [Suspect]
     Active Substance: VERAPAMIL HYDROCHLORIDE
     Indication: MIGRAINE
     Dosage: UNK
     Route: 065
  6. ENDEP [Suspect]
     Active Substance: AMITRIPTYLINE HYDROCHLORIDE
     Indication: MIGRAINE
     Dosage: 100 MG, NOCTE
     Route: 065
  7. TRIPTAN [Concomitant]
     Indication: MIGRAINE
     Dosage: UNK
     Route: 065
  8. SANDOMIGRAN [Suspect]
     Active Substance: PIZOTYLINE
     Indication: MIGRAINE
     Dosage: UNK
     Route: 065
  9. PREDNISONE. [Suspect]
     Active Substance: PREDNISONE
     Indication: MIGRAINE
     Dosage: UNK
     Route: 065
  10. BOTOX [Suspect]
     Active Substance: ONABOTULINUMTOXINA
     Indication: MIGRAINE
     Dosage: UNK
     Route: 065
  11. AIMOVIG [Suspect]
     Active Substance: ERENUMAB-AOOE
     Indication: MIGRAINE
     Dosage: 140 MG, QMO
     Route: 065
     Dates: start: 20180705
  12. CYPROHEPTADINE. [Suspect]
     Active Substance: CYPROHEPTADINE
     Indication: MIGRAINE
     Dosage: UNK
     Route: 065
  13. FLUNARIZINE [Suspect]
     Active Substance: FLUNARIZINE
     Indication: MIGRAINE
     Dosage: 10 MG, QD
     Route: 065
  14. LARGACTIL [Concomitant]
     Active Substance: CHLORPROMAZINE
     Indication: MIGRAINE
     Dosage: UNK
     Route: 065
  15. CANDESARTAN. [Suspect]
     Active Substance: CANDESARTAN
     Indication: MIGRAINE
     Dosage: UNK
     Route: 065

REACTIONS (5)
  - Road traffic accident [Unknown]
  - Migraine [Unknown]
  - Iron deficiency anaemia [Unknown]
  - Asthenia [Unknown]
  - Asthma [Unknown]
